FAERS Safety Report 9159961 (Version 1)
Quarter: 2013Q1

REPORT INFORMATION
  Report Type: Spontaneous
  Country: BR (occurrence: BR)
  Receive Date: 20130313
  Receipt Date: 20130313
  Transmission Date: 20140127
  Serious: Yes (Other)
  Sender: FDA-Public Use
  Company Number: PHHY2013BR024035

PATIENT
  Sex: Female
  Weight: 64 kg

DRUGS (1)
  1. ACLASTA [Suspect]
     Indication: OSTEOPOROSIS
     Dosage: 5 MG, PER YEAR
     Route: 042

REACTIONS (3)
  - Mass [Recovering/Resolving]
  - Swelling face [Recovering/Resolving]
  - Deformity [Recovering/Resolving]
